FAERS Safety Report 8475933-X (Version None)
Quarter: 2012Q2

REPORT INFORMATION
  Report Type: 
  Country: None (occurrence: None)
  Receive Date: 20120621
  Receipt Date: 20120615
  Transmission Date: 20120825
  Serious: Yes (Death, Life-Threatening, Hospitalization, Other)
  Sender: FDA-Public Use
  Company Number: 2009SP005572

PATIENT
  Age: 51 Year
  Sex: Male
  Weight: 75 kg

DRUGS (5)
  1. TEMODAL [Suspect]
     Indication: GLIOBLASTOMA MULTIFORME
     Dosage: 75 MG/M2;QD;PO
     Route: 048
     Dates: start: 20080818, end: 20080926
  2. ACETAMINOPHEN [Concomitant]
  3. DEXAMETHASONE [Concomitant]
  4. PANTOPRAZOLE [Concomitant]
  5. DEXAMETHASONE SODIUM PHOSPHATE [Concomitant]

REACTIONS (3)
  - NAUSEA [None]
  - HEPATITIS ACUTE [None]
  - CHOLESTASIS [None]
